FAERS Safety Report 17089810 (Version 2)
Quarter: 2019Q4

REPORT INFORMATION
  Report Type: Report from Study
  Country: FR (occurrence: FR)
  Receive Date: 20191128
  Receipt Date: 20191213
  Transmission Date: 20200122
  Serious: Yes (Death, Hospitalization, Other)
  Sender: FDA-Public Use
  Company Number: FR-BRISTOL-MYERS SQUIBB COMPANY-BMS-2017-091206

PATIENT
  Age: 52 Year
  Sex: Male

DRUGS (1)
  1. NIVOLUMAB [Suspect]
     Active Substance: NIVOLUMAB
     Indication: LUNG NEOPLASM MALIGNANT
     Dosage: 3 MG/KG, Q2WK
     Route: 042
     Dates: start: 20170607, end: 20180903

REACTIONS (7)
  - Malignant neoplasm progression [Not Recovered/Not Resolved]
  - Executive dysfunction [None]
  - Interstitial lung disease [Recovered/Resolved]
  - Leukoencephalopathy [Fatal]
  - Hemiplegia [None]
  - Medical device site infection [Recovering/Resolving]
  - Psychomotor skills impaired [None]

NARRATIVE: CASE EVENT DATE: 20170621
